FAERS Safety Report 9638145 (Version 1)
Quarter: 2013Q4

REPORT INFORMATION
  Report Type: Spontaneous
  Country: US (occurrence: US)
  Receive Date: 20131022
  Receipt Date: 20131022
  Transmission Date: 20140711
  Serious: No
  Sender: FDA-Public Use
  Company Number: US-PFIZER INC-2013299395

PATIENT
  Age: 38 Year
  Sex: Female

DRUGS (5)
  1. XELJANZ [Suspect]
     Indication: RHEUMATOID ARTHRITIS
     Dosage: 5 MG, BID
     Route: 048
     Dates: end: 20130901
  2. PLAQUENIL [Concomitant]
     Dosage: 200 MG, UNK
  3. METHOTREXATE [Concomitant]
     Dosage: 2.5 MG, UNK
  4. VOLTAREN-XR [Concomitant]
     Dosage: 100 MG, UNK
  5. LOESTRIN FE 1/20 [Concomitant]
     Dosage: UNK

REACTIONS (1)
  - Drug ineffective [Unknown]
